FAERS Safety Report 26001578 (Version 2)
Quarter: 2025Q4

REPORT INFORMATION
  Report Type: Spontaneous
  Country: US (occurrence: US)
  Receive Date: 20251105
  Receipt Date: 20251125
  Transmission Date: 20260117
  Serious: Yes (Other)
  Sender: CIPLA
  Company Number: US-CIPLA LTD.-2025US13572

PATIENT

DRUGS (2)
  1. TOPIRAMATE [Suspect]
     Active Substance: TOPIRAMATE
     Indication: Seizure
     Dosage: UNK (REGULAR USER)
     Route: 048
     Dates: start: 2015
  2. TOPIRAMATE [Suspect]
     Active Substance: TOPIRAMATE
     Dosage: UNK
     Route: 048
     Dates: start: 202510

REACTIONS (10)
  - Loss of consciousness [Unknown]
  - Tongue discomfort [Unknown]
  - Pruritus [Unknown]
  - Dysphagia [Unknown]
  - Tongue biting [Unknown]
  - Product quality issue [Unknown]
  - Product after taste [Unknown]
  - Anger [Unknown]
  - Feeling abnormal [Unknown]
  - Abdominal discomfort [Unknown]

NARRATIVE: CASE EVENT DATE: 20250101
